FAERS Safety Report 5873511-X (Version None)
Quarter: 2008Q3

REPORT INFORMATION
  Report Type: 
  Country: None (occurrence: None)
  Receive Date: 20080829
  Receipt Date: 20080818
  Transmission Date: 20090109
  Serious: Yes (Other)
  Sender: FDA-Public Use
  Company Number: 230071M08GBR

PATIENT

DRUGS (1)
  1. REBIF [Suspect]
     Dates: start: 20000101

REACTIONS (1)
  - MALIGNANT MELANOMA [None]
